FAERS Safety Report 7796754-7 (Version None)
Quarter: 2011Q4

REPORT INFORMATION
  Report Type: 
  Country: None (occurrence: None)
  Receive Date: 20111005
  Receipt Date: 20110929
  Transmission Date: 20120403
  Serious: Yes (Other)
  Sender: FDA-Public Use
  Company Number: US-PFIZER INC-2011233885

PATIENT
  Sex: Male

DRUGS (2)
  1. PHENOBARBITAL [Concomitant]
     Indication: CONVULSION
     Dosage: UNK
  2. DILANTIN [Suspect]
     Indication: CONVULSION
     Dosage: 200 MG, 1X/DAY
     Route: 048

REACTIONS (1)
  - BONE DENSITY DECREASED [None]
